FAERS Safety Report 24793919 (Version 1)
Quarter: 2024Q4

REPORT INFORMATION
  Report Type: Spontaneous
  Country: US (occurrence: US)
  Receive Date: 20241231
  Receipt Date: 20241231
  Transmission Date: 20250115
  Serious: No
  Sender: NOVARTIS
  Company Number: US-002147023-NVSC2024US245915

PATIENT
  Sex: Female
  Weight: 62.132 kg

DRUGS (2)
  1. AFINITOR [Suspect]
     Active Substance: EVEROLIMUS
     Indication: Product used for unknown indication
     Dosage: UNK
     Route: 065
  2. LENVIMA [Suspect]
     Active Substance: LENVATINIB
     Indication: Thyroid cancer
     Dosage: 14 MG, QD (10MG/4MG) 5-DAY PK - COMM
     Route: 048

REACTIONS (4)
  - Rash [Unknown]
  - Facial pain [Unknown]
  - Discomfort [Unknown]
  - Decreased appetite [Unknown]
